FAERS Safety Report 17512088 (Version 1)
Quarter: 2020Q1

REPORT INFORMATION
  Report Type: Spontaneous
  Country: US (occurrence: US)
  Receive Date: 20200306
  Receipt Date: 20200306
  Transmission Date: 20200409
  Serious: Yes (Other)
  Sender: FDA-Public Use
  Company Number: US-NAPPMUNDI-USA-2020-0150161

PATIENT
  Sex: Male

DRUGS (6)
  1. OXYCONTIN [Suspect]
     Active Substance: OXYCODONE HYDROCHLORIDE
     Indication: INJURY
     Dosage: 80 MG,BID OR TID
     Route: 048
  2. OXYCONTIN [Suspect]
     Active Substance: OXYCODONE HYDROCHLORIDE
     Indication: PAIN
  3. MORPHINE SULFATE (SIMILAR TO NDA 19-516) [Suspect]
     Active Substance: MORPHINE SULFATE
     Indication: PAIN
     Route: 048
  4. OXYCODONE HYDROCHLORIDE (SIMILAR TO NDA 22-272) [Suspect]
     Active Substance: OXYCODONE HYDROCHLORIDE
     Indication: INJURY
     Route: 048
  5. PERCOCET                           /00446701/ [Suspect]
     Active Substance: ACETAMINOPHEN\OXYCODONE HYDROCHLORIDE\OXYCODONE TEREPHTHALATE
     Indication: PAIN
     Route: 048
  6. HYDROMORPHONE HCL (SIMILAR TO 19-892) [Suspect]
     Active Substance: HYDROMORPHONE HYDROCHLORIDE
     Indication: INJURY
     Dosage: 8 DF, TID
     Route: 048

REACTIONS (18)
  - Depression [Not Recovered/Not Resolved]
  - Anxiety [Not Recovered/Not Resolved]
  - Bradyphrenia [Not Recovered/Not Resolved]
  - Gastrointestinal pain [Not Recovered/Not Resolved]
  - Mental disorder [Unknown]
  - Post-traumatic stress disorder [Unknown]
  - Intestinal obstruction [Not Recovered/Not Resolved]
  - Quality of life decreased [Not Recovered/Not Resolved]
  - Lethargy [Not Recovered/Not Resolved]
  - Hypersomnia [Not Recovered/Not Resolved]
  - Drug dependence [Unknown]
  - Disability [Not Recovered/Not Resolved]
  - Off label use [Recovered/Resolved]
  - Blood testosterone decreased [Not Recovered/Not Resolved]
  - Apathy [Unknown]
  - Suicidal ideation [Unknown]
  - Drug withdrawal syndrome [Unknown]
  - Gastrointestinal disorder [Not Recovered/Not Resolved]

NARRATIVE: CASE EVENT DATE: 2016
